FAERS Safety Report 17896459 (Version 1)
Quarter: 2020Q2

REPORT INFORMATION
  Report Type: Spontaneous
  Country: US (occurrence: US)
  Receive Date: 20200615
  Receipt Date: 20200615
  Transmission Date: 20200714
  Serious: Yes (Hospitalization)
  Sender: FDA-Public Use
  Company Number: US-AMNEAL PHARMACEUTICALS-2020-AMRX-01678

PATIENT
  Age: 34 Year
  Sex: Female

DRUGS (2)
  1. BUPIVACAINE. [Concomitant]
     Active Substance: BUPIVACAINE
     Indication: SPINAL ANAESTHESIA
     Dosage: UNK
     Route: 037
  2. DIGOXIN. [Suspect]
     Active Substance: DIGOXIN
     Indication: PRODUCT USED FOR UNKNOWN INDICATION
     Dosage: UNK
     Route: 037

REACTIONS (6)
  - Spinal cord oedema [Recovering/Resolving]
  - Coma [Recovered/Resolved]
  - Paralysis [Not Recovered/Not Resolved]
  - Accidental exposure to product [Unknown]
  - Generalised tonic-clonic seizure [Recovered/Resolved]
  - Maternal exposure during delivery [Unknown]
